FAERS Safety Report 11226288 (Version 3)
Quarter: 2015Q4

REPORT INFORMATION
  Report Type: Report from Study
  Country: DE (occurrence: DE)
  Receive Date: 20150629
  Receipt Date: 20151201
  Transmission Date: 20160304
  Serious: Yes (Hospitalization)
  Sender: FDA-Public Use
  Company Number: DE-BAXALTA-2015BLT000085

PATIENT
  Sex: Male
  Weight: 142.4 kg

DRUGS (20)
  1. HYQVIA [Suspect]
     Active Substance: HUMAN IMMUNOGLOBULIN G\HYALURONIDASE RECOMBINANT HUMAN
     Dosage: 200 ML IG, 10 ML RHUPH20, ONCE, MAX INFUSION RATE 300 ML/H
     Route: 058
     Dates: start: 20150502, end: 20150502
  2. METFORMIN [Concomitant]
     Active Substance: METFORMIN HYDROCHLORIDE
     Indication: INSULIN RESISTANCE
     Dosage: 500 MG, 2X A DAY
     Route: 048
     Dates: start: 20141021
  3. CAPVAL [Concomitant]
     Active Substance: NOSCAPINE
     Indication: BRONCHITIS
     Dosage: 25 MG, AS NEEDED
     Route: 048
     Dates: start: 20150316, end: 20150320
  4. HYQVIA [Suspect]
     Active Substance: HUMAN IMMUNOGLOBULIN G\HYALURONIDASE RECOMBINANT HUMAN
     Dosage: 300 ML IG, 15 ML RHUPH20, ONCE, MAX INFUSION RATE 300 ML/H
     Route: 058
     Dates: start: 20150516, end: 20150516
  5. HYQVIA [Suspect]
     Active Substance: HUMAN IMMUNOGLOBULIN G\HYALURONIDASE RECOMBINANT HUMAN
     Dosage: UNK
     Dates: start: 20141213, end: 20150419
  6. HYQVIA [Suspect]
     Active Substance: HUMAN IMMUNOGLOBULIN G\HYALURONIDASE RECOMBINANT HUMAN
     Dosage: UNK
     Dates: start: 20141213, end: 20150419
  7. IBUPROFEN. [Concomitant]
     Active Substance: IBUPROFEN
     Indication: HEADACHE
     Dosage: 600 MG, AS NEEDED
     Route: 048
     Dates: start: 2012
  8. LERCANIDIPINE [Concomitant]
     Active Substance: LERCANIDIPINE
     Indication: HYPERTENSION
     Dosage: 10 MG, 1X A DAY
     Route: 048
     Dates: start: 20141021
  9. IBUPROFEN. [Concomitant]
     Active Substance: IBUPROFEN
     Dosage: 800 MG AS NEEDED
     Route: 048
     Dates: start: 20150202, end: 20150206
  10. PANTOPRAZOL [Concomitant]
     Active Substance: PANTOPRAZOLE SODIUM
     Dosage: 20 MG, AS NEEDED
     Route: 048
     Dates: start: 20150616
  11. HYQVIA [Suspect]
     Active Substance: HUMAN IMMUNOGLOBULIN G\HYALURONIDASE RECOMBINANT HUMAN
     Indication: IMMUNODEFICIENCY COMMON VARIABLE
     Dosage: 200 ML IG, 10ML RHUPH20, ONCE, MAX INFUSION 300 ML/H
     Route: 058
     Dates: start: 20150530, end: 20150530
  12. HYQVIA [Suspect]
     Active Substance: HUMAN IMMUNOGLOBULIN G\HYALURONIDASE RECOMBINANT HUMAN
     Dosage: UNK
     Dates: start: 20141213, end: 20150419
  13. MOXONIDIN [Concomitant]
     Active Substance: MOXONIDINE
     Indication: HYPERTENSION
     Dosage: 0.2 MG, 2X A DAY
     Route: 048
     Dates: start: 20141010
  14. LEVOFLOXACIN. [Concomitant]
     Active Substance: LEVOFLOXACIN
     Indication: BRONCHITIS
     Dosage: 500 MG, 2X A DAY
     Route: 048
     Dates: start: 20150114, end: 20150122
  15. PANTOPRAZOL [Concomitant]
     Active Substance: PANTOPRAZOLE SODIUM
     Indication: GASTROOESOPHAGEAL REFLUX DISEASE
     Dosage: 40 MG, 1X A DAY
     Route: 048
     Dates: start: 20150316, end: 20150616
  16. HYQVIA [Suspect]
     Active Substance: HUMAN IMMUNOGLOBULIN G\HYALURONIDASE RECOMBINANT HUMAN
     Dosage: 200-300 ML IG, 10-15 ML RHUPH20, Q1-2 WEEKS
     Route: 058
     Dates: start: 20141213, end: 20150419
  17. HYQVIA [Suspect]
     Active Substance: HUMAN IMMUNOGLOBULIN G\HYALURONIDASE RECOMBINANT HUMAN
     Dosage: UNK
     Dates: start: 20141213, end: 20150419
  18. EUTHYROX [Concomitant]
     Active Substance: LEVOTHYROXINE SODIUM
     Indication: AUTOIMMUNE THYROIDITIS
     Dosage: 175 ?G, 1X A DAY
     Route: 048
     Dates: start: 1999
  19. IBUPROFEN. [Concomitant]
     Active Substance: IBUPROFEN
     Indication: VIRAL INFECTION
     Dosage: 800 MG, AS NEEDED
     Route: 048
     Dates: start: 20150302, end: 20150313
  20. GEN-RAMIPRIL [Concomitant]
     Indication: HYPERTENSION
     Dosage: 10 MG, 2X A DAY
     Route: 048
     Dates: start: 20141021

REACTIONS (1)
  - Ankle fracture [Recovering/Resolving]

NARRATIVE: CASE EVENT DATE: 20150601
